FAERS Safety Report 5391636-2 (Version None)
Quarter: 2007Q3

REPORT INFORMATION
  Report Type: 
  Country: None (occurrence: None)
  Receive Date: 20070719
  Receipt Date: 20070712
  Transmission Date: 20080115
  Serious: Yes (Other)
  Sender: FDA-Public Use
  Company Number: NL-BOEHRINGER INGELHEIM PHARMACEUTICALS, INC.-2007-NL-00305NL

PATIENT
  Sex: Female

DRUGS (1)
  1. ASPIRIN AND DIPYRIDAMOLE [Suspect]

REACTIONS (1)
  - NEOPLASM SKIN [None]
